FAERS Safety Report 7361084-4 (Version None)
Quarter: 2011Q1

REPORT INFORMATION
  Report Type: 
  Country: None (occurrence: None)
  Receive Date: 20110318
  Receipt Date: 20110307
  Transmission Date: 20110831
  Serious: Yes (Other)
  Sender: FDA-Public Use
  Company Number: CN-ROCHE-764481

PATIENT
  Age: 66 Year
  Sex: Male

DRUGS (2)
  1. RIBAVIRIN [Suspect]
     Dosage: PATIENT WAS LESS THAN 75KG IN BODY WT
     Route: 048
  2. INTERFERON ALFA [Suspect]
     Dosage: DOSE OF 6 MILLION UNITS
     Route: 058

REACTIONS (3)
  - PATHOGEN RESISTANCE [None]
  - HEPATIC CIRRHOSIS [None]
  - UPPER GASTROINTESTINAL HAEMORRHAGE [None]
